FAERS Safety Report 6396824-4 (Version None)
Quarter: 2009Q4

REPORT INFORMATION
  Report Type: 
  Country: None (occurrence: None)
  Receive Date: 20091012
  Receipt Date: 20091005
  Transmission Date: 20100525
  Serious: Yes (Hospitalization)
  Sender: FDA-Public Use
  Company Number: US-GILEAD-2009-0024645

PATIENT
  Sex: Female

DRUGS (20)
  1. LETAIRIS [Suspect]
     Indication: PULMONARY ARTERIAL HYPERTENSION
     Route: 048
     Dates: start: 20090119
  2. PROTONIX [Concomitant]
  3. FUROSEMIDE [Concomitant]
  4. AVASTIN [Concomitant]
  5. SPIRIVA [Concomitant]
  6. REVATIO [Concomitant]
  7. ADVAIR DISKUS 100/50 [Concomitant]
  8. SINGULAIR [Concomitant]
  9. FLUTICASONE PROPIONATE [Concomitant]
  10. TEMODAR [Concomitant]
  11. ZOFRAN [Concomitant]
  12. CREON [Concomitant]
  13. COMPAZINE [Concomitant]
  14. ASTELIN [Concomitant]
  15. FERROUS SULFATE TAB [Concomitant]
  16. MUCINEX [Concomitant]
  17. ZYRTEC [Concomitant]
  18. RESTASIS [Concomitant]
  19. POTASSIUM CHLORIDE [Concomitant]
  20. OXYCODONE [Concomitant]

REACTIONS (1)
  - URINARY TRACT INFECTION [None]
